FAERS Safety Report 13715311 (Version 5)
Quarter: 2018Q2

REPORT INFORMATION
  Report Type: Report from Study
  Country: CA (occurrence: CA)
  Receive Date: 20170704
  Receipt Date: 20180403
  Transmission Date: 20180711
  Serious: Yes (Hospitalization, Other)
  Sender: FDA-Public Use
  Company Number: CA-BRISTOL-MYERS SQUIBB COMPANY-BMS-2017-053949

PATIENT
  Age: 80 Year
  Sex: Female

DRUGS (2)
  1. ABATACEPT [Suspect]
     Active Substance: ABATACEPT
     Indication: RHEUMATOID ARTHRITIS
     Dosage: 750 MG, QWK
     Route: 042
  2. ABATACEPT [Suspect]
     Active Substance: ABATACEPT
     Indication: PRODUCT USED FOR UNKNOWN INDICATION
     Dosage: 750 MG, Q4WK
     Route: 042
     Dates: start: 20110328

REACTIONS (9)
  - Fall [Unknown]
  - Pulmonary embolism [Recovered/Resolved]
  - Circumstance or information capable of leading to medication error [Unknown]
  - Pneumonia [Unknown]
  - Haemorrhage [Unknown]
  - Arrhythmia [Unknown]
  - Off label use [Unknown]
  - Rheumatoid arthritis [Unknown]
  - Laceration [Unknown]

NARRATIVE: CASE EVENT DATE: 20170611
